FAERS Safety Report 18024696 (Version 1)
Quarter: 2020Q3

REPORT INFORMATION
  Report Type: Spontaneous
  Country: US (occurrence: US)
  Receive Date: 20200715
  Receipt Date: 20200715
  Transmission Date: 20201103
  Serious: Yes (Death)
  Sender: FDA-Public Use
  Company Number: None

PATIENT
  Sex: Male

DRUGS (11)
  1. ELIQUIS [Concomitant]
     Active Substance: APIXABAN
  2. VITAMIN D [Concomitant]
     Active Substance: VITAMIN D NOS
  3. ALLEGRA [Concomitant]
     Active Substance: FEXOFENADINE HYDROCHLORIDE
  4. COENZYME Q10 [Concomitant]
     Active Substance: DIETARY SUPPLEMENT\UBIDECARENONE
  5. MAG?OX [Concomitant]
     Active Substance: MAGNESIUM OXIDE
  6. TAMSULOSIN [Concomitant]
     Active Substance: TAMSULOSIN
  7. PREDNISONE. [Concomitant]
     Active Substance: PREDNISONE
  8. HUMIRA [Suspect]
     Active Substance: ADALIMUMAB
     Indication: CROHN^S DISEASE
     Dosage: ?          OTHER FREQUENCY:EVERY 2 WEEKS;?
     Route: 058
     Dates: start: 20131014
  9. CA?PLUS [Concomitant]
  10. FLORAJEN3 [Concomitant]
  11. IRON [Concomitant]
     Active Substance: IRON

REACTIONS (1)
  - Death [None]
